FAERS Safety Report 10246786 (Version 1)
Quarter: 2014Q2

REPORT INFORMATION
  Report Type: Spontaneous
  Country: US (occurrence: None)
  Receive Date: 20140617
  Receipt Date: 20140617
  Transmission Date: 20141212
  Serious: Yes (Disabling)
  Sender: FDA-Public Use
  Company Number: None

PATIENT
  Age: 26 Year
  Sex: Female
  Weight: 50.35 kg

DRUGS (2)
  1. MICROGESTIN [Suspect]
     Indication: CONTRACEPTION
     Route: 048
     Dates: start: 20131001, end: 20140615
  2. MICROGESTIN [Suspect]
     Indication: MENORRHAGIA
     Route: 048
     Dates: start: 20131001, end: 20140615

REACTIONS (2)
  - Dry skin [None]
  - Dry skin [None]
